FAERS Safety Report 23773296 (Version 2)
Quarter: 2024Q3

REPORT INFORMATION
  Report Type: Spontaneous
  Country: CN (occurrence: CN)
  Receive Date: 20240423
  Receipt Date: 20240724
  Transmission Date: 20241017
  Serious: Yes (Life-Threatening, Hospitalization)
  Sender: BAYER
  Company Number: CN-BAYER-2024A060628

PATIENT
  Age: 42 Year
  Sex: Female

DRUGS (1)
  1. AVELOX [Suspect]
     Active Substance: MOXIFLOXACIN HYDROCHLORIDE
     Indication: Cough
     Dosage: 0.4 G, QD
     Route: 048
     Dates: start: 20240330, end: 20240330

REACTIONS (10)
  - Anaphylactic shock [Recovering/Resolving]
  - Confusional state [Recovering/Resolving]
  - Chest discomfort [Recovering/Resolving]
  - Tachypnoea [Recovering/Resolving]
  - Dyspnoea [Recovering/Resolving]
  - Cyanosis [Recovering/Resolving]
  - Blood pressure decreased [Recovering/Resolving]
  - Pruritus [Recovering/Resolving]
  - Throat irritation [Recovering/Resolving]
  - Off label use [None]

NARRATIVE: CASE EVENT DATE: 20240330
